FAERS Safety Report 16272266 (Version 1)
Quarter: 2019Q2

REPORT INFORMATION
  Report Type: Report from Study
  Country: US (occurrence: US)
  Receive Date: 20190503
  Receipt Date: 20190503
  Transmission Date: 20190711
  Serious: Yes (Hospitalization, Other)
  Sender: FDA-Public Use
  Company Number: US-ACTELION-A-NJ2019-190022

PATIENT
  Sex: Female
  Weight: 76.19 kg

DRUGS (1)
  1. OPSUMIT [Suspect]
     Active Substance: MACITENTAN
     Indication: PULMONARY ARTERIAL HYPERTENSION
     Dosage: 10 MG, QD
     Route: 048

REACTIONS (10)
  - Dental restoration failure [Unknown]
  - Swelling face [Unknown]
  - Lung infection [Unknown]
  - Gingivitis [Unknown]
  - Peripheral swelling [Unknown]
  - Cardiac infection [Unknown]
  - Cardiac failure [Unknown]
  - Surgery [Unknown]
  - Cardiac disorder [Unknown]
  - Swelling [Unknown]
